FAERS Safety Report 6645418-1 (Version None)
Quarter: 2010Q1

REPORT INFORMATION
  Report Type: 
  Country: None (occurrence: None)
  Receive Date: 20100322
  Receipt Date: 20100312
  Transmission Date: 20100710
  Serious: Yes (Life-Threatening, Hospitalization, Other)
  Sender: FDA-Public Use
  Company Number: CA-BRISTOL-MYERS SQUIBB COMPANY-14924575

PATIENT
  Age: 65 Year
  Sex: Female

DRUGS (4)
  1. ABILIFY [Suspect]
     Indication: SCHIZOPHRENIA
     Route: 048
     Dates: start: 20091201
  2. ATACAND [Concomitant]
  3. DETROL [Concomitant]
  4. LORAZEPAM [Concomitant]

REACTIONS (3)
  - HYPONATRAEMIA [None]
  - INFLUENZA LIKE ILLNESS [None]
  - OSMOTIC DEMYELINATION SYNDROME [None]
